FAERS Safety Report 22222448 (Version 1)
Quarter: 2023Q2

REPORT INFORMATION
  Report Type: Spontaneous
  Country: US (occurrence: US)
  Receive Date: 20230418
  Receipt Date: 20230418
  Transmission Date: 20230721
  Serious: Yes (Death)
  Sender: FDA-Public Use
  Company Number: US-CTI BIOPHARMA-2023US03532

PATIENT

DRUGS (12)
  1. VONJO [Suspect]
     Active Substance: PACRITINIB
     Indication: Myeloproliferative neoplasm
     Dosage: 200 MG, BID
     Route: 048
     Dates: start: 20230203, end: 20230315
  2. SIMVASTATIN [Concomitant]
     Active Substance: SIMVASTATIN
  3. ALPRAZOLAM [Concomitant]
     Active Substance: ALPRAZOLAM
  4. VITAMIN B [Concomitant]
     Active Substance: VITAMIN B
  5. PIOGLITAZONE [Concomitant]
     Active Substance: PIOGLITAZONE
  6. GLIMEPIRIDE [Concomitant]
     Active Substance: GLIMEPIRIDE
  7. FAMOTIDINE [Concomitant]
     Active Substance: FAMOTIDINE
  8. VITAMINS NOS [Concomitant]
     Active Substance: VITAMINS
  9. LATANOPROST [Concomitant]
     Active Substance: LATANOPROST
  10. TYLENOL EXTRA STRENGTH [Concomitant]
     Active Substance: ACETAMINOPHEN
  11. WELLBUTRIN [Concomitant]
     Active Substance: BUPROPION HYDROCHLORIDE
  12. PRAVASTATIN [Concomitant]
     Active Substance: PRAVASTATIN

REACTIONS (1)
  - Death [Fatal]

NARRATIVE: CASE EVENT DATE: 20230315
